FAERS Safety Report 6161300-0 (Version None)
Quarter: 2009Q2

REPORT INFORMATION
  Report Type: 
  Country: None (occurrence: None)
  Receive Date: 20090421
  Receipt Date: 20090415
  Transmission Date: 20091009
  Serious: Yes (Death, Life-Threatening)
  Sender: FDA-Public Use
  Company Number: US-ROXANE LABORATORIES, INC.-2009-RO-00384RO

PATIENT
  Sex: Male

DRUGS (7)
  1. NAPROXEN [Suspect]
  2. MORPHINE [Suspect]
  3. XYLAZINE [Suspect]
  4. FENTANYL [Suspect]
  5. BENZOYLECGONINE [Suspect]
  6. IBUPROFEN [Suspect]
  7. HEROIN [Concomitant]

REACTIONS (2)
  - ADVERSE DRUG REACTION [None]
  - CARDIAC ARREST [None]
